FAERS Safety Report 17181435 (Version 1)
Quarter: 2019Q4

REPORT INFORMATION
  Report Type: Spontaneous
  Country: DE (occurrence: DE)
  Receive Date: 20191220
  Receipt Date: 20191220
  Transmission Date: 20200122
  Serious: Yes (Death)
  Sender: FDA-Public Use
  Company Number: DE-CHEPLA-C20193455

PATIENT
  Sex: Female

DRUGS (4)
  1. ETOPOSIDE PHOSPHATE [Suspect]
     Active Substance: ETOPOSIDE PHOSPHATE
     Indication: ACUTE MYELOID LEUKAEMIA
     Dosage: 15 MG PER ADMINISTRATION
     Route: 065
  2. CYTARABINE. [Suspect]
     Active Substance: CYTARABINE
     Route: 065
  3. CYTARABINE. [Suspect]
     Active Substance: CYTARABINE
     Route: 065
  4. DAUNOXOME [Suspect]
     Active Substance: DAUNORUBICIN CITRATE
     Route: 065

REACTIONS (4)
  - Erythema [Unknown]
  - Epidermolysis [Unknown]
  - Venoocclusive liver disease [Unknown]
  - Multiple organ dysfunction syndrome [Fatal]
